FAERS Safety Report 20758073 (Version 1)
Quarter: 2022Q2

REPORT INFORMATION
  Report Type: Spontaneous
  Country: US (occurrence: US)
  Receive Date: 20220427
  Receipt Date: 20220427
  Transmission Date: 20220721
  Serious: No
  Sender: FDA-Public Use
  Company Number: US-PFIZER INC-202101342953

PATIENT
  Age: 62 Year
  Sex: Female
  Weight: 52.16 kg

DRUGS (1)
  1. CHANTIX [Suspect]
     Active Substance: VARENICLINE TARTRATE
     Indication: Smoking cessation therapy
     Dosage: 1 MG, 2X/DAY
     Route: 048
     Dates: start: 2004, end: 202004

REACTIONS (5)
  - Abdominal discomfort [Recovered/Resolved]
  - Vomiting [Recovered/Resolved]
  - Retching [Recovered/Resolved]
  - Nausea [Recovered/Resolved]
  - Nightmare [Not Recovered/Not Resolved]
